FAERS Safety Report 14043072 (Version 3)
Quarter: 2018Q1

REPORT INFORMATION
  Report Type: Spontaneous
  Country: US (occurrence: US)
  Receive Date: 20171004
  Receipt Date: 20180105
  Transmission Date: 20180508
  Serious: No
  Sender: FDA-Public Use
  Company Number: US-PFIZER INC-2017424759

PATIENT
  Age: 56 Year
  Sex: Female
  Weight: 95.24 kg

DRUGS (1)
  1. NEURONTIN [Suspect]
     Active Substance: GABAPENTIN
     Dosage: 100MG TABLET IN THE MORNING/TWO TO THREE AT BEDTIME/ONE AT NOON, FIVE ALL TOGETHER)

REACTIONS (3)
  - Drug hypersensitivity [Unknown]
  - Drug effect incomplete [Unknown]
  - Inappropriate schedule of drug administration [Unknown]
